FAERS Safety Report 5793959-1 (Version None)
Quarter: 2008Q2

REPORT INFORMATION
  Report Type: 
  Country: None (occurrence: None)
  Receive Date: 20080627
  Receipt Date: 20080625
  Transmission Date: 20081010
  Serious: Yes (Hospitalization, Disabling, Other)
  Sender: FDA-Public Use
  Company Number: FR-WYE-G01530908

PATIENT
  Sex: Male
  Weight: 80 kg

DRUGS (6)
  1. ADVIL [Suspect]
     Indication: HYPERTHERMIA
     Route: 048
     Dates: start: 20080510, end: 20080515
  2. ADVIL [Suspect]
     Indication: SKIN INFECTION
  3. ADVIL [Suspect]
     Indication: MUCOSAL INFECTION
  4. ACETAMINOPHEN [Concomitant]
     Indication: HYPERTHERMIA
     Route: 048
     Dates: start: 20080510, end: 20080515
  5. PYOSTACINE [Concomitant]
     Indication: SKIN INFECTION
     Route: 048
     Dates: start: 20080510, end: 20080515
  6. PYOSTACINE [Concomitant]
     Indication: MUCOSAL INFECTION

REACTIONS (4)
  - ANURIA [None]
  - HYPERTENSION [None]
  - PULMONARY OEDEMA [None]
  - RENAL FAILURE ACUTE [None]
